FAERS Safety Report 15279071 (Version 1)
Quarter: 2018Q3

REPORT INFORMATION
  Report Type: Report from Study
  Country: None (occurrence: US)
  Receive Date: 20180815
  Receipt Date: 20180815
  Transmission Date: 20181010
  Serious: Yes (Hospitalization, Other)
  Sender: FDA-Public Use
  Company Number: US-ABBVIE-18K-163-2402677-00

PATIENT
  Age: 62 Year
  Sex: Male
  Weight: 99.88 kg

DRUGS (3)
  1. HUMIRA [Suspect]
     Active Substance: ADALIMUMAB
     Indication: COLITIS ULCERATIVE
     Route: 058
     Dates: start: 201803, end: 20180525
  2. METOPROLOL. [Concomitant]
     Active Substance: METOPROLOL
     Indication: ARRHYTHMIA
  3. HUMIRA [Suspect]
     Active Substance: ADALIMUMAB
     Route: 058
     Dates: start: 20180627

REACTIONS (3)
  - Back pain [Recovered/Resolved]
  - Hypoaesthesia [Recovered/Resolved]
  - Cardiac output decreased [Recovered/Resolved]

NARRATIVE: CASE EVENT DATE: 201804
